FAERS Safety Report 16679588 (Version 1)
Quarter: 2019Q3

REPORT INFORMATION
  Report Type: Other
  Country: US (occurrence: US)
  Receive Date: 20190807
  Receipt Date: 20190807
  Transmission Date: 20191004
  Serious: Yes (Other)
  Sender: FDA-Public Use
  Company Number: US-GUTHY-RENKER, LLC-2072871

PATIENT
  Age: 65 Year
  Sex: Male

DRUGS (2)
  1. MEANINGFUL BEAUTY CINDY CRAWFORD SKIN BRIGHTENING DECOLLETE AND NECK TREATMENT SPF 15 [Suspect]
     Active Substance: AVOBENZONE\OCTINOXATE\OCTISALATE\OXYBENZONE
     Dates: start: 201907, end: 201907
  2. MEANINGFUL BEAUTY DARK SPOT CORRECTING TREATMENT [Concomitant]
     Active Substance: HYDROQUINONE
     Dates: start: 201907, end: 201907

REACTIONS (1)
  - Dyspnoea [Recovered/Resolved]

NARRATIVE: CASE EVENT DATE: 201907
